FAERS Safety Report 20912296 (Version 2)
Quarter: 2022Q3

REPORT INFORMATION
  Report Type: Report from Study
  Country: CA (occurrence: None)
  Receive Date: 20220603
  Receipt Date: 20220705
  Transmission Date: 20221026
  Serious: Yes (Death, Other)
  Sender: FDA-Public Use
  Company Number: 2022A204120

PATIENT
  Sex: Female

DRUGS (1)
  1. TAGRISSO [Suspect]
     Active Substance: OSIMERTINIB
     Indication: Small cell lung cancer metastatic
     Route: 048
     Dates: start: 20210610

REACTIONS (1)
  - Death [Fatal]
